FAERS Safety Report 19269450 (Version 1)
Quarter: 2021Q2

REPORT INFORMATION
  Report Type: Report from Study
  Country: BR (occurrence: BR)
  Receive Date: 20210518
  Receipt Date: 20210518
  Transmission Date: 20210717
  Serious: Yes (Disabling, Other)
  Sender: FDA-Public Use
  Company Number: BR-TEVA-2021-BR-1912675

PATIENT
  Sex: Male

DRUGS (4)
  1. COPAXONE [Suspect]
     Active Substance: GLATIRAMER ACETATE
     Indication: RELAPSING-REMITTING MULTIPLE SCLEROSIS
  2. BRASART 320MG [Concomitant]
  3. ANLODIPINE BESYLATE 10MG [Concomitant]
  4. ATENOLOL 50 MG [Concomitant]
     Active Substance: ATENOLOL

REACTIONS (9)
  - Throat tightness [Recovered/Resolved]
  - Depressed mood [Recovered/Resolved]
  - Head discomfort [Recovered/Resolved]
  - Mobility decreased [Recovered/Resolved]
  - Pain [Recovered/Resolved]
  - Injection site erythema [Recovered/Resolved]
  - Spinal pain [Recovered/Resolved]
  - Dyspnoea [Recovered/Resolved]
  - Dysstasia [Recovered/Resolved]
